FAERS Safety Report 6137514-2 (Version None)
Quarter: 2009Q1

REPORT INFORMATION
  Report Type: 
  Country: None (occurrence: None)
  Receive Date: 20090326
  Receipt Date: 20090311
  Transmission Date: 20090719
  Serious: Yes (Hospitalization)
  Sender: FDA-Public Use
  Company Number: 2009S1004326

PATIENT
  Age: 34 Year
  Sex: Male

DRUGS (5)
  1. DOXYCYCLINE [Suspect]
     Indication: MALARIA PROPHYLAXIS
     Dosage: 100 MG; TWICE A DAY; ORAL
     Route: 048
     Dates: start: 20090213, end: 20090217
  2. DOXYCYCLINE [Suspect]
     Indication: PROPHYLAXIS
     Dosage: 100 MG; TWICE A DAY; ORAL
     Route: 048
     Dates: start: 20090213, end: 20090217
  3. ARTESUNATE [Concomitant]
  4. CYCLIZINE [Concomitant]
  5. DOMPERIDONE [Concomitant]

REACTIONS (1)
  - HAEMOLYSIS [None]
